FAERS Safety Report 16306373 (Version 1)
Quarter: 2019Q2

REPORT INFORMATION
  Report Type: Spontaneous
  Country: HR (occurrence: HR)
  Receive Date: 20190513
  Receipt Date: 20190513
  Transmission Date: 20190711
  Serious: Yes (Other)
  Sender: FDA-Public Use
  Company Number: HR-FRESENIUS KABI-FK201905224

PATIENT
  Sex: Male

DRUGS (6)
  1. SODIUM BENZOATE [Suspect]
     Active Substance: SODIUM BENZOATE
     Indication: HYPERAMMONAEMIA
     Dosage: INFUSED OVER 90 OR 120 MINUTES
     Route: 065
  2. SODIUM BENZOATE [Suspect]
     Active Substance: SODIUM BENZOATE
     Route: 065
  3. ARGININE HYDROCHLORIDE [Suspect]
     Active Substance: ARGININE HYDROCHLORIDE
     Dosage: 200 TO 420 MG/KG
     Route: 065
  4. MORPHINE (MANUFACTURER UNKNOWN) [Suspect]
     Active Substance: MORPHINE
     Indication: SEDATIVE THERAPY
     Dosage: 25 UG/KG/H
     Route: 065
  5. MIDAZOLAM [Concomitant]
     Active Substance: MIDAZOLAM HYDROCHLORIDE
     Indication: SEDATIVE THERAPY
     Dosage: 1 UG/KG/MIN
     Route: 065
  6. ARGININE HYDROCHLORIDE [Suspect]
     Active Substance: ARGININE HYDROCHLORIDE
     Indication: HYPERAMMONAEMIA
     Dosage: INFUSED OVER 90 OR 120 MINUTES
     Route: 065

REACTIONS (2)
  - Oedema [Recovered/Resolved]
  - Hypotension [Recovered/Resolved]
